FAERS Safety Report 12519792 (Version 1)
Quarter: 2016Q3

REPORT INFORMATION
  Report Type: Spontaneous
  Country: US (occurrence: US)
  Receive Date: 20160701
  Receipt Date: 20160701
  Transmission Date: 20161109
  Serious: Yes (Hospitalization)
  Sender: FDA-Public Use
  Company Number: US-WEST-WARD PHARMACEUTICALS CORP.-US-H14001-16-01098

PATIENT
  Age: 62 Year
  Sex: Male

DRUGS (2)
  1. PREDNISONE. [Suspect]
     Active Substance: PREDNISONE
     Indication: RASH
     Route: 065
  2. PREDNISONE. [Suspect]
     Active Substance: PREDNISONE
     Indication: DERMATITIS CONTACT
     Route: 065

REACTIONS (3)
  - Steatohepatitis [Recovered/Resolved]
  - Drug-induced liver injury [Recovered/Resolved]
  - Acute hepatic failure [Recovered/Resolved]
